FAERS Safety Report 11934509 (Version 2)
Quarter: 2016Q1

REPORT INFORMATION
  Report Type: Spontaneous
  Country: PK (occurrence: PK)
  Receive Date: 20160121
  Receipt Date: 20160209
  Transmission Date: 20160526
  Serious: Yes (Death, Hospitalization)
  Sender: FDA-Public Use
  Company Number: PK-SA-2016SA010945

PATIENT
  Age: 22 Year
  Sex: Male
  Weight: 60 kg

DRUGS (1)
  1. THYMOGLOBULIN [Suspect]
     Active Substance: LAPINE T-LYMPHOCYTE IMMUNE GLOBULIN
     Indication: IMMUNE TOLERANCE INDUCTION
     Route: 042
     Dates: start: 201601, end: 201601

REACTIONS (4)
  - Transplant rejection [Fatal]
  - Renal tubular necrosis [Unknown]
  - Abdominal pain [Fatal]
  - Haemorrhage [Fatal]

NARRATIVE: CASE EVENT DATE: 201601
